FAERS Safety Report 5863103-0 (Version None)
Quarter: 2008Q3

REPORT INFORMATION
  Report Type: 
  Country: None (occurrence: None)
  Receive Date: 20080828
  Receipt Date: 20080825
  Transmission Date: 20090109
  Serious: Yes (Hospitalization, Other)
  Sender: FDA-Public Use
  Company Number: US-MERCK-0808USA04648

PATIENT
  Age: 87 Year
  Sex: Female

DRUGS (6)
  1. FOSAMAX PLUS D [Suspect]
     Indication: OSTEOPOROSIS
     Route: 048
     Dates: start: 20010101
  2. ATENOLOL [Concomitant]
     Route: 065
  3. COZAAR [Concomitant]
     Route: 065
  4. VYTORIN [Concomitant]
     Route: 065
  5. LEVOTHROID [Concomitant]
     Route: 065
  6. ASPIRIN [Concomitant]
     Route: 065

REACTIONS (5)
  - DEAFNESS [None]
  - FALL [None]
  - HIP FRACTURE [None]
  - LIMB INJURY [None]
  - PELVIC FRACTURE [None]
